FAERS Safety Report 9007912 (Version 2)
Quarter: 2013Q2

REPORT INFORMATION
  Report Type: Spontaneous
  Country: US (occurrence: None)
  Receive Date: 20120517
  Receipt Date: 20120830
  Transmission Date: 20140414
  Serious: Yes (Hospitalization)
  Sender: FDA-Public Use
  Company Number: PHHY2011US53536

PATIENT
  Age: 68 Year
  Sex: Male

DRUGS (30)
  1. SANDOSTATIN LAR DEPOT [Suspect]
     Indication: CARCINOID TUMOUR
     Route: 042
     Dates: start: 20100208
  2. SANDOSTATIN LAR DEPOT [Suspect]
     Indication: CARCINOID TUMOUR
     Route: 042
     Dates: start: 20100208
  3. ZOLPIDEM (ZOLPIDEM) [Concomitant]
  4. SUCRALFATE (SUCRALFATE) [Concomitant]
  5. TAMSULOSIN (TAMSULOSIN) [Concomitant]
  6. TEMAZEPAM (TEMAZEPAM) [Concomitant]
  7. TEMODAR (TEMOZOLOMIDE) [Concomitant]
  8. VALACICLOVIR (VALACICLOVIR) [Concomitant]
  9. CLONIDINE (CLONIDINE) [Concomitant]
  10. CVS ANTIDIARRHEAL [Concomitant]
  11. DIAZEPAM (DIAZEPAM) [Concomitant]
  12. ATROPINE (ATROPINE) [Concomitant]
  13. AMLODIPINE (AMLODIPINE) [Concomitant]
  14. ARIXTRA (FONDAPARINUX SODIUM) [Concomitant]
  15. CEPHALEXIN (CEFALEXIN) [Concomitant]
  16. FINASTERIDE (FINASTERIDE) [Concomitant]
  17. MOUTHWASH [Concomitant]
  18. HYDROCODONE (HYDROCODONE) [Concomitant]
  19. LEXAPRO (ESCITALOPRAM OXALATE) [Concomitant]
  20. LORAZEPAM (LORAZEPAM) [Concomitant]
  21. METHOCARBAMOL (METHOCARBAMOL) [Concomitant]
  22. METHYLIN (METHYLPHENIDATE HYDROCHLORIDE) [Concomitant]
  23. METHYLPHENIDATE [Concomitant]
  24. NUCYNTA (TAPENTADOL HYDROCHLORIDE) [Concomitant]
  25. ONDANSETRON HYDROCHLORIDE (ONDANSETRON HYDROCHLORIDE) [Concomitant]
  26. OXYCODONE (OXYCODONE) [Concomitant]
  27. PANTOPRAZOLE (PANTOPRAZOLE) [Concomitant]
  28. PROVIGIL (MODAFINIL) [Concomitant]
  29. ROXICET (OXYCODONE HYDROCHLORIDE, PARACETAMOL) [Concomitant]
  30. THALOMID (THALIDOMIDE) [Concomitant]

REACTIONS (2)
  - Neoplasm malignant [None]
  - Intestinal obstruction [None]
